FAERS Safety Report 8173003-1 (Version None)
Quarter: 2012Q1

REPORT INFORMATION
  Report Type: 
  Country: None (occurrence: None)
  Receive Date: 20120104
  Receipt Date: 20110916
  Transmission Date: 20120608
  Serious: No
  Sender: FDA-Public Use
  Company Number: 2011HGS-002545

PATIENT
  Age: 49 Year
  Sex: Female
  Weight: 87.9978 kg

DRUGS (14)
  1. PLAQUENIL (HYDROXYCHLOROQUINE SULFATE) (HYDROXYCHLOROQUINE SULFATE) [Concomitant]
  2. METOPROLOL SUCCINATE [Concomitant]
  3. CITRACAL WITH VITAMIN D (CITRACAL + D) (ERGOCALCIFEROL, CALCIUM CITRAT [Concomitant]
  4. B COMPLEX (BECOSYM FORTE) (PYRIDOXINE HYDROCHLORIDE, THIAMINE HYDROCHL [Concomitant]
  5. FOLIC ACID SUPPLEMENT (FOLIC ACID) (FOLIC ACID) [Concomitant]
  6. BIOTIN (BIOTIN) (BIOTIN) [Concomitant]
  7. BENLYSTA [Suspect]
     Indication: SYSTEMIC LUPUS ERYTHEMATOSUS
     Dosage: 1 IN 4 WK, INTRAVENOUS DRIP
     Route: 041
     Dates: start: 20110630
  8. IMITREX (SUMATRIPTAN SUCCINATE) (SUMATRIPTAN SUCCINATE) [Concomitant]
  9. ALDACTONE [Concomitant]
  10. PREDNISONE [Concomitant]
  11. DIOVAN/ HCT (CO-DIOVAN) (HYDROCHLOROTHIAZIDE, VALSARTAN) [Concomitant]
  12. NEURONTIN [Concomitant]
  13. B12 (CYANOCOBALAMIN) (CYANOCOBALAMIN) [Concomitant]
  14. VITAMIN E SUPPLEMENT (TOCOPHEROL) (TOCOPHEROL) [Concomitant]

REACTIONS (10)
  - ARTHRALGIA [None]
  - CHEST DISCOMFORT [None]
  - PYREXIA [None]
  - FALL [None]
  - BRONCHITIS [None]
  - GALLBLADDER DISORDER [None]
  - OROPHARYNGEAL PAIN [None]
  - VISION BLURRED [None]
  - BACK PAIN [None]
  - LABORATORY TEST ABNORMAL [None]
